FAERS Safety Report 8879500 (Version 1)
Quarter: 2012Q4

REPORT INFORMATION
  Report Type: 
  Country: GB (occurrence: GB)
  Receive Date: 20121101
  Receipt Date: 20121101
  Transmission Date: 20130627
  Serious: Yes (Life-Threatening)
  Sender: FDA-Public Use
  Company Number: GB-MILLENNIUM PHARMACEUTICALS, INC.-2012-05991

PATIENT

DRUGS (4)
  1. VELCADE [Suspect]
     Indication: MULTIPLE MYELOMA
     Dosage: 1.3 mg/m2, Cyclic
     Route: 042
     Dates: start: 20120615, end: 20120910
  2. DEXAMETHASONE [Concomitant]
     Indication: MULTIPLE MYELOMA
     Dosage: 20 mg, UNK
     Route: 048
     Dates: start: 20120615, end: 20120831
  3. ACICLOVIR [Concomitant]
     Indication: PROPHYLAXIS
     Dosage: 20 mg, UNK
     Route: 048
     Dates: start: 20120615, end: 20120920
  4. OMEPRAZOLE [Concomitant]
     Dosage: 20 mg, UNK
     Route: 048
     Dates: start: 20120615, end: 20120910

REACTIONS (3)
  - Pyrexia [Recovered/Resolved]
  - Tachycardia [Recovered/Resolved]
  - Drug hypersensitivity [Unknown]
